FAERS Safety Report 6069884-8 (Version None)
Quarter: 2009Q1

REPORT INFORMATION
  Report Type: 
  Country: None (occurrence: None)
  Receive Date: 20090209
  Receipt Date: 20090105
  Transmission Date: 20090719
  Serious: No
  Sender: FDA-Public Use
  Company Number: US-BAYER-200836983NA

PATIENT
  Age: 24 Year
  Sex: Female

DRUGS (3)
  1. MIRENA [Suspect]
     Indication: CONTRACEPTION
     Route: 015
     Dates: start: 20070801, end: 20080801
  2. MIRENA [Suspect]
     Route: 015
     Dates: start: 20080901
  3. FLU SHOT NOS [Concomitant]
     Dates: start: 20081024

REACTIONS (7)
  - AMENORRHOEA [None]
  - CERVICAL DYSPLASIA [None]
  - FOOD AVERSION [None]
  - GENITAL HAEMORRHAGE [None]
  - INTRA-UTERINE CONTRACEPTIVE DEVICE EXPELLED [None]
  - MALAISE [None]
  - PROCEDURAL PAIN [None]
